FAERS Safety Report 4930040-5 (Version None)
Quarter: 2006Q1

REPORT INFORMATION
  Report Type: 
  Country: None (occurrence: None)
  Receive Date: 20060228
  Receipt Date: 20060228
  Transmission Date: 20060701
  Serious: Yes (Other)
  Sender: FDA-Public Use
  Company Number: None

PATIENT
  Sex: Female
  Weight: 195 kg

DRUGS (2)
  1. GAMMAGARD S/D [Suspect]
     Indication: ANAPHYLACTIC REACTION
     Dosage: 30 GM Q 4 WEEKS IV
     Route: 042
     Dates: start: 20051212, end: 20060206
  2. GAMMAGARD S/D [Suspect]

REACTIONS (3)
  - INFUSION RELATED REACTION [None]
  - NAUSEA [None]
  - VOMITING [None]
